FAERS Safety Report 8922968 (Version 1)
Quarter: 2012Q4

REPORT INFORMATION
  Report Type: Spontaneous
  Country: US (occurrence: None)
  Receive Date: 20121115
  Receipt Date: 20121115
  Transmission Date: 20130627
  Serious: Yes (Other)
  Sender: FDA-Public Use
  Company Number: None

PATIENT
  Age: 61 Year
  Sex: Female

DRUGS (1)
  1. CLOPIDOGREL [Suspect]
     Indication: CORONARY ARTERY DISEASE
     Dates: start: 20120320, end: 20120324

REACTIONS (2)
  - Pharyngeal oedema [None]
  - Product substitution issue [None]
